FAERS Safety Report 18222342 (Version 1)
Quarter: 2020Q3

REPORT INFORMATION
  Report Type: Spontaneous
  Country: US (occurrence: US)
  Receive Date: 20200902
  Receipt Date: 20200902
  Transmission Date: 20201103
  Serious: Yes (Hospitalization)
  Sender: FDA-Public Use
  Company Number: None

PATIENT
  Age: 35 Year
  Sex: Female
  Weight: 86 kg

DRUGS (1)
  1. PHENYTOIN. [Suspect]
     Active Substance: PHENYTOIN
     Indication: SEIZURE
     Route: 048
     Dates: start: 20200729, end: 20200816

REACTIONS (17)
  - Septic shock [None]
  - Chest pain [None]
  - Staphylococcal sepsis [None]
  - Osteomyelitis [None]
  - Seizure [None]
  - Dyspnoea [None]
  - Intervertebral discitis [None]
  - Hypotension [None]
  - Asthenia [None]
  - Acute kidney injury [None]
  - Endocarditis [None]
  - Fatigue [None]
  - Eosinophilia [None]
  - Enterobacter infection [None]
  - Drug reaction with eosinophilia and systemic symptoms [None]
  - Pulmonary embolism [None]
  - Rash erythematous [None]

NARRATIVE: CASE EVENT DATE: 20200816
